FAERS Safety Report 15696290 (Version 1)
Quarter: 2018Q4

REPORT INFORMATION
  Report Type: Spontaneous
  Country: US (occurrence: US)
  Receive Date: 20181206
  Receipt Date: 20181206
  Transmission Date: 20190205
  Serious: No
  Sender: FDA-Public Use
  Company Number: US-BAYER-2018-219600

PATIENT
  Age: 69 Year
  Sex: Male

DRUGS (1)
  1. LOTRIMIN ULTRA ANTIFUNGAL [Suspect]
     Active Substance: BUTENAFINE HYDROCHLORIDE
     Indication: TINEA PEDIS
     Dosage: APPLY TO AFFECTIVE SKIN BETWEEN AND AROUND THE TOES TWICE A DAY FOR 1WEEK

REACTIONS (2)
  - Wrong technique in product usage process [Recovered/Resolved]
  - Accidental exposure to product [Recovered/Resolved]

NARRATIVE: CASE EVENT DATE: 20081124
